FAERS Safety Report 7745806-6 (Version None)
Quarter: 2011Q3

REPORT INFORMATION
  Report Type: 
  Country: None (occurrence: None)
  Receive Date: 20110913
  Receipt Date: 20110906
  Transmission Date: 20111222
  Serious: No
  Sender: FDA-Public Use
  Company Number: US-BAYER-2011-062139

PATIENT
  Sex: Female

DRUGS (27)
  1. OXYCODONE HCL [Concomitant]
     Dosage: 5 MG, UNK
     Dates: start: 20110525, end: 20110629
  2. CEPHALEXIN [Concomitant]
     Dosage: 500 MG, UNK
     Dates: start: 20110520, end: 20110629
  3. NORMODYNE [Concomitant]
     Dosage: 100 MG, UNK
     Dates: start: 20110517, end: 20110629
  4. OGESTREL 0.5/50-21 [Concomitant]
     Dosage: UNK
     Dates: start: 20110216, end: 20110629
  5. NEXAVAR [Suspect]
     Indication: ACUTE MYELOID LEUKAEMIA
     Dosage: 100 MG, BID
     Dates: start: 20110708, end: 20110712
  6. AMLODIPINE BESYLATE [Concomitant]
     Dosage: 2.5 MG, UNK
     Dates: start: 20110613, end: 20110629
  7. MUPIROCIN [Concomitant]
     Dosage: 2 %, UNK
     Dates: start: 20110620, end: 20110629
  8. ZOLPIDEM [Concomitant]
     Dosage: 5 MG, UNK
     Dates: start: 20110323, end: 20110629
  9. PREDNISONE [Concomitant]
     Dosage: 2.5 MG, UNK
     Dates: start: 20110320, end: 20110629
  10. HYDROCORTISONE [Concomitant]
     Dosage: 5 MG, UNK
     Dates: start: 20110603, end: 20110629
  11. ACYCLOVIR [Concomitant]
     Dosage: 400 MG, UNK
     Dates: start: 20110701, end: 20110711
  12. DRONABINOL [Concomitant]
     Dosage: 5 MG, UNK
     Dates: start: 20110518, end: 20110629
  13. LORAZEPAM [Concomitant]
     Dosage: 2 MG, UNK
     Dates: start: 20110217, end: 20110629
  14. GRANISETRON [Concomitant]
     Dosage: 1 MG, UNK
     Dates: start: 20110708, end: 20110711
  15. OMEPRAZOLE [Concomitant]
     Dosage: 20 MG, UNK
     Dates: start: 20110602, end: 20110629
  16. DOC-Q-LACE [Concomitant]
     Dosage: 100 MG, UNK
     Dates: start: 20110429, end: 20110629
  17. PREDNISONE [Concomitant]
     Dosage: 5 MG, UNK
     Dates: start: 20110322, end: 20110629
  18. TACROLIMUS [Concomitant]
     Dosage: 0.5 MG, UNK
     Dates: start: 20110307, end: 20110629
  19. MAGNESIA [MAGNESIUM OXIDE] [Concomitant]
     Dosage: 100 MG, UNK
     Dates: start: 20110602, end: 20110629
  20. TACROLIMUS [Concomitant]
     Dosage: 0.5 MG, UNK
     Dates: start: 20110503, end: 20110629
  21. GRANISETRON [Concomitant]
     Dosage: 1 MG, UNK
     Dates: start: 20110513
  22. SULFAMETHOXAZOLE AND TRIMETHOPRIM [Concomitant]
     Dosage: UNK
     Dates: start: 20110627, end: 20110629
  23. TRIAMCINOLONE [Concomitant]
     Dosage: 0.1 %, UNK
     Dates: start: 20110524, end: 20110629
  24. TACROLIMUS [Concomitant]
     Dosage: 0.5 MG, UNK
     Dates: start: 20110217, end: 20110629
  25. LUNESTA [Concomitant]
     Dosage: 1 MG, UNK
     Dates: start: 20110406, end: 20110629
  26. FLUCONAZOLE [Concomitant]
     Dosage: 150 MG, UNK
     Dates: start: 20110315, end: 20110629
  27. URSODIOL [Concomitant]
     Dosage: 250 MG, UNK
     Dates: start: 20110216, end: 20110629

REACTIONS (3)
  - HEADACHE [None]
  - RASH PRURITIC [None]
  - DIARRHOEA [None]
